FAERS Safety Report 12411167 (Version 4)
Quarter: 2016Q3

REPORT INFORMATION
  Report Type: Spontaneous
  Country: US (occurrence: US)
  Receive Date: 20160527
  Receipt Date: 20160802
  Transmission Date: 20161109
  Serious: Yes (Hospitalization)
  Sender: FDA-Public Use
  Company Number: US-NOVEN PHARMACEUTICALS, INC.-US2016001155

PATIENT

DRUGS (5)
  1. DAYTRANA [Suspect]
     Active Substance: METHYLPHENIDATE
     Dosage: TWO 20 MG PATCHES PER DAY
     Route: 062
     Dates: start: 201604
  2. CETRIZINE [Concomitant]
     Active Substance: CETIRIZINE HYDROCHLORIDE
     Indication: SEASONAL ALLERGY
     Dosage: 5 MG, AT 6 IN THE EVENING
  3. CLONIDINE. [Concomitant]
     Active Substance: CLONIDINE
     Indication: INSOMNIA
     Dosage: 0.1 MG, BETWEEN 6:30 AND 7 PM
  4. DAYTRANA [Suspect]
     Active Substance: METHYLPHENIDATE
     Indication: ATTENTION DEFICIT/HYPERACTIVITY DISORDER
     Dosage: TWO 20 MG PATCHES PER DAY
     Route: 062
     Dates: end: 201509
  5. METHYLPHENIDATE. [Concomitant]
     Active Substance: METHYLPHENIDATE
     Dosage: 10 MG, AT 6 AM AND 1 PM AT SCHOOL
     Route: 048

REACTIONS (18)
  - Impulsive behaviour [Recovered/Resolved]
  - Frustration tolerance decreased [Recovered/Resolved]
  - Thinking abnormal [Recovered/Resolved]
  - Anger [Recovered/Resolved]
  - Insomnia [Recovered/Resolved]
  - Product adhesion issue [Unknown]
  - Off label use [Unknown]
  - Prescribed overdose [Not Recovered/Not Resolved]
  - Drug withdrawal syndrome [Recovered/Resolved]
  - Agitation [Unknown]
  - Oppositional defiant disorder [Unknown]
  - Hunger [Unknown]
  - Wrong technique in product usage process [Not Recovered/Not Resolved]
  - Drug dose omission [Recovered/Resolved]
  - Screaming [Unknown]
  - Psychomotor hyperactivity [Unknown]
  - Aggression [Recovered/Resolved]
  - Irritability [Recovered/Resolved]
